FAERS Safety Report 21898620 (Version 1)
Quarter: 2023Q1

REPORT INFORMATION
  Report Type: Spontaneous
  Country: US (occurrence: None)
  Receive Date: 20230121
  Receipt Date: 20230121
  Transmission Date: 20230418
  Serious: Yes (Hospitalization, Other)
  Sender: FDA-Public Use
  Company Number: None

PATIENT
  Sex: 0

DRUGS (3)
  1. IVOSIDENIB [Suspect]
     Active Substance: IVOSIDENIB
     Indication: Isocitrate dehydrogenase gene mutation
     Dosage: FREQUENCY : DAILY;?
     Route: 048
     Dates: start: 20221223
  2. IVOSIDENIB [Suspect]
     Active Substance: IVOSIDENIB
     Indication: Cholangiocarcinoma
  3. IVOSIDENIB [Suspect]
     Active Substance: IVOSIDENIB
     Indication: Cholangiocarcinoma

REACTIONS (9)
  - Abdominal distension [None]
  - Abdominal pain [None]
  - Ascites [None]
  - Hyponatraemia [None]
  - Leukocytosis [None]
  - Arthralgia [None]
  - Tachycardia [None]
  - Pleural effusion [None]
  - Weight increased [None]

NARRATIVE: CASE EVENT DATE: 20230104
